FAERS Safety Report 11757955 (Version 1)
Quarter: 2015Q4

REPORT INFORMATION
  Report Type: Spontaneous
  Country: US (occurrence: None)
  Receive Date: 20151119
  Receipt Date: 20151119
  Transmission Date: 20160304
  Serious: No
  Sender: FDA-Public Use
  Company Number: None

PATIENT
  Age: 31 Year
  Sex: Female
  Weight: 99.79 kg

DRUGS (1)
  1. MAKENA [Suspect]
     Active Substance: HYDROXYPROGESTERONE CAPROATE
     Indication: PREGNANCY
     Route: 028
     Dates: start: 20151023, end: 20151118

REACTIONS (6)
  - Injection site pain [None]
  - Injection site warmth [None]
  - Injection site swelling [None]
  - Injection site pruritus [None]
  - Maternal exposure during pregnancy [None]
  - Injection site erythema [None]

NARRATIVE: CASE EVENT DATE: 20151117
